FAERS Safety Report 18143268 (Version 1)
Quarter: 2020Q3

REPORT INFORMATION
  Report Type: Report from Study
  Country: FR (occurrence: FR)
  Receive Date: 20200812
  Receipt Date: 20200812
  Transmission Date: 20201103
  Serious: Yes (Hospitalization)
  Sender: FDA-Public Use
  Company Number: FR-ROCHE-2654838

PATIENT
  Age: 80 Year
  Sex: Male

DRUGS (8)
  1. CISPLATIN. [Suspect]
     Active Substance: CISPLATIN
     Indication: ANAL SQUAMOUS CELL CARCINOMA
     Dosage: LAST DOSE WAS ADMINISTERED ON 13/JUL/2020 AT 40 MG/M2
     Route: 065
     Dates: start: 20200713
  2. DOCETAXEL. [Suspect]
     Active Substance: DOCETAXEL
     Indication: ANAL SQUAMOUS CELL CARCINOMA
     Dosage: LAST DOSE WAS ADMINISTERED ON 13/JUL/2020 AT 40 MG/M2
     Route: 065
     Dates: start: 20200713
  3. BIPROFENID [Concomitant]
     Active Substance: KETOPROFEN
  4. OXYCONTIN [Concomitant]
     Active Substance: OXYCODONE HYDROCHLORIDE
  5. OXYNORMORO [Concomitant]
     Active Substance: OXYCODONE HYDROCHLORIDE
  6. INEXIUM [Concomitant]
     Active Substance: ESOMEPRAZOLE
  7. ATEZOLIZUMAB. [Suspect]
     Active Substance: ATEZOLIZUMAB
     Indication: ANAL SQUAMOUS CELL CARCINOMA
     Dosage: LAST DOSE WAS ADMINISTERED ON 13/JUL/2020 AT 800 MG
     Route: 042
     Dates: start: 20200713
  8. 5?FU [Suspect]
     Active Substance: FLUOROURACIL
     Indication: ANAL SQUAMOUS CELL CARCINOMA
     Dosage: LAST DOSE WAS ADMINISTERED ON 13/JUL/2020 AT 2400 MG/M2
     Route: 065
     Dates: start: 20200713

REACTIONS (1)
  - Acute kidney injury [Recovered/Resolved]

NARRATIVE: CASE EVENT DATE: 20200725
